FAERS Safety Report 5790628-9 (Version None)
Quarter: 2008Q2

REPORT INFORMATION
  Report Type: 
  Country: None (occurrence: None)
  Receive Date: 20080626
  Receipt Date: 20080502
  Transmission Date: 20081010
  Serious: No
  Sender: FDA-Public Use
  Company Number: A0725992A

PATIENT
  Sex: Female

DRUGS (4)
  1. ALLI [Suspect]
  2. FISH OIL [Concomitant]
  3. FLAXSEED [Concomitant]
  4. VITAMIN E [Concomitant]

REACTIONS (2)
  - DRUG INEFFECTIVE [None]
  - GASTROINTESTINAL DISORDER [None]
